FAERS Safety Report 12417675 (Version 3)
Quarter: 2016Q4

REPORT INFORMATION
  Report Type: Report from Study
  Country: CA (occurrence: CA)
  Receive Date: 20160530
  Receipt Date: 20161128
  Transmission Date: 20170207
  Serious: Yes (Other)
  Sender: FDA-Public Use
  Company Number: PHHY2016CA073055

PATIENT
  Sex: Male

DRUGS (4)
  1. SANDOSTATIN [Suspect]
     Active Substance: OCTREOTIDE ACETATE
     Indication: ACROMEGALY
     Dosage: 100 UG, UNK
     Route: 058
     Dates: start: 20110408
  2. SANDOSTATIN LAR DEPOT [Suspect]
     Active Substance: OCTREOTIDE ACETATE
     Indication: ACROMEGALY
     Dosage: 20 MG, QMO (ONCE A MONTH)
     Route: 030
     Dates: start: 20110504
  3. SANDOSTATIN LAR DEPOT [Suspect]
     Active Substance: OCTREOTIDE ACETATE
     Dosage: 40 MG, QMO (ONCE A MONTH)
     Route: 030
     Dates: start: 20110808, end: 20161025
  4. SANDOSTATIN LAR DEPOT [Suspect]
     Active Substance: OCTREOTIDE ACETATE
     Dosage: 30 MG, QMO (ONCE A MONTH)
     Route: 030
     Dates: start: 20110622

REACTIONS (2)
  - Intracranial mass [Unknown]
  - Blood pressure systolic increased [Unknown]
